FAERS Safety Report 19733719 (Version 3)
Quarter: 2021Q3

REPORT INFORMATION
  Report Type: Report from Study
  Country: US (occurrence: US)
  Receive Date: 20210823
  Receipt Date: 20210907
  Transmission Date: 20211014
  Serious: Yes (Other)
  Sender: FDA-Public Use
  Company Number: US-PUMA BIOTECHNOLOGY, INC.-2020US002662

PATIENT

DRUGS (8)
  1. NERLYNX [Suspect]
     Active Substance: NERATINIB
     Dosage: 160 MG (4 TABLETS), DAILY
     Route: 048
     Dates: start: 202005, end: 20201017
  2. CAPECITABINE. [Suspect]
     Active Substance: CAPECITABINE
     Dosage: 1000 MG AM, 500 MG PM FOR 14 DAYS ON/ 7 DAYS OFF
     Route: 065
  3. NERLYNX [Suspect]
     Active Substance: NERATINIB
     Dosage: 240 MG (6 TABLETS), DAILY
     Route: 048
     Dates: start: 20201018, end: 2021
  4. NERLYNX [Suspect]
     Active Substance: NERATINIB
     Dosage: 240 MG, DAILY
     Route: 048
     Dates: start: 2021
  5. NERLYNX [Suspect]
     Active Substance: NERATINIB
     Indication: BREAST CANCER FEMALE
     Dosage: 120 MG (3 TABLETS), DAILY
     Route: 048
     Dates: start: 20200424, end: 2020
  6. CAPECITABINE. [Suspect]
     Active Substance: CAPECITABINE
     Indication: BREAST CANCER FEMALE
     Dosage: 1500 MG, BID (FOR 14DAYS ON AND 7 DAYS OFF)
     Route: 065
     Dates: start: 20200424, end: 2020
  7. CAPECITABINE. [Suspect]
     Active Substance: CAPECITABINE
     Dosage: 1000 MG, BID (14 DAYS ON/ 7 DAYS OFF)
     Route: 065
  8. NERLYNX [Suspect]
     Active Substance: NERATINIB
     Dosage: 160 MG (4 TABLETS), DAILY
     Route: 048
     Dates: start: 2021, end: 2021

REACTIONS (8)
  - Constipation [Unknown]
  - Off label use [Unknown]
  - Muscle spasms [Not Recovered/Not Resolved]
  - Diarrhoea [Not Recovered/Not Resolved]
  - Ageusia [Unknown]
  - Dehydration [Unknown]
  - Pruritus [Not Recovered/Not Resolved]
  - Underdose [Unknown]

NARRATIVE: CASE EVENT DATE: 2020
